FAERS Safety Report 8799076 (Version 1)
Quarter: 2012Q4

REPORT INFORMATION
  Report Type: 
  Country: US (occurrence: US)
  Receive Date: 20120920
  Receipt Date: 20120920
  Transmission Date: 20130627
  Serious: Yes (Other)
  Sender: FDA-Public Use
  Company Number: US-ASTRAZENECA-2011SE60001

PATIENT
  Age: 50 Year
  Sex: Female

DRUGS (5)
  1. LISINOPRIL [Suspect]
     Route: 048
  2. CRESTOR [Concomitant]
  3. NITROGLYCERIN [Concomitant]
  4. SIMVASTATIN [Concomitant]
  5. SOTALOL [Concomitant]

REACTIONS (1)
  - Cerebrovascular accident [Unknown]
